FAERS Safety Report 5017656-5 (Version None)
Quarter: 2006Q2

REPORT INFORMATION
  Report Type: 
  Country: None (occurrence: None)
  Receive Date: 20060605
  Receipt Date: 20060524
  Transmission Date: 20061013
  Serious: Yes (Life-Threatening, Hospitalization)
  Sender: FDA-Public Use
  Company Number: US-ROCHE-449103

PATIENT
  Sex: Female
  Weight: 49 kg

DRUGS (2)
  1. PEG-INTERFERON ALFA 2A (RO 25-8310) [Suspect]
     Route: 058
     Dates: start: 20060224
  2. RIBAVIRIN [Suspect]
     Route: 048
     Dates: start: 20060324

REACTIONS (1)
  - CHOLELITHIASIS [None]
